FAERS Safety Report 21178241 (Version 1)
Quarter: 2022Q3

REPORT INFORMATION
  Report Type: Spontaneous
  Country: CN (occurrence: CN)
  Receive Date: 20220805
  Receipt Date: 20220805
  Transmission Date: 20221027
  Serious: Yes (Other)
  Sender: FDA-Public Use
  Company Number: CN-NOVARTISPH-NVSC2022CN177508

PATIENT
  Age: 50 Year
  Sex: Male
  Weight: 70 kg

DRUGS (1)
  1. VOTRIENT [Suspect]
     Active Substance: PAZOPANIB HYDROCHLORIDE
     Indication: Neoplasm malignant
     Dosage: 800 MG, BID
     Route: 048
     Dates: start: 20220614, end: 20220628

REACTIONS (3)
  - Amylase increased [Recovering/Resolving]
  - Diarrhoea [Recovering/Resolving]
  - Lipase increased [Recovering/Resolving]

NARRATIVE: CASE EVENT DATE: 20220705
